FAERS Safety Report 15669187 (Version 1)
Quarter: 2018Q4

REPORT INFORMATION
  Report Type: Spontaneous
  Country: AT (occurrence: AT)
  Receive Date: 20181129
  Receipt Date: 20181129
  Transmission Date: 20190205
  Serious: Yes (Hospitalization)
  Sender: FDA-Public Use
  Company Number: AT-TEVA-607500ISR

PATIENT
  Age: 23 Year
  Sex: Female

DRUGS (1)
  1. MIRTAZAPINE 30 MG [Suspect]
     Active Substance: MIRTAZAPINE
     Dosage: 14 DOSAGE FORMS DAILY; 14 DF (DOSAGE FORMS), TOTAL
     Route: 048
     Dates: start: 20150217, end: 20150217

REACTIONS (3)
  - Intentional overdose [Unknown]
  - Dizziness [Recovered/Resolved]
  - Poisoning deliberate [Recovered/Resolved]

NARRATIVE: CASE EVENT DATE: 20150217
